FAERS Safety Report 10045602 (Version 1)
Quarter: 2014Q1

REPORT INFORMATION
  Report Type: Spontaneous
  Country: US (occurrence: None)
  Receive Date: 20140306
  Receipt Date: 20140306
  Transmission Date: 20141002
  Serious: Yes (Hospitalization)
  Sender: FDA-Public Use
  Company Number: 163-21880-13060981

PATIENT
  Age: 68 Year
  Sex: Male
  Weight: 74.84 kg

DRUGS (3)
  1. REVLIMID (LENALIDOMIDE) (5 MILLIGRAM, CAPSULES) [Suspect]
     Indication: PLASMA CELL MYELOMA
     Dosage: 5 MG, 21 IN 28 D, PO
     Route: 048
     Dates: start: 20130319, end: 201304
  2. DEXAMETHSONE [Concomitant]
  3. VELCADE (BORTEZOMIB) [Concomitant]

REACTIONS (1)
  - Pneumonia [None]
